FAERS Safety Report 24204188 (Version 1)
Quarter: 2024Q3

REPORT INFORMATION
  Report Type: Spontaneous
  Country: US (occurrence: US)
  Receive Date: 20240813
  Receipt Date: 20240813
  Transmission Date: 20241016
  Serious: No
  Sender: RANBAXY
  Company Number: US-SUN PHARMACEUTICAL INDUSTRIES LTD-2024R1-439883

PATIENT
  Sex: Female

DRUGS (1)
  1. TRAMADOL [Suspect]
     Active Substance: TRAMADOL\TRAMADOL HYDROCHLORIDE
     Indication: Pain
     Dosage: UNK
     Route: 065

REACTIONS (8)
  - Asthma [Unknown]
  - Dizziness [Unknown]
  - Fall [Unknown]
  - Hypersensitivity [Unknown]
  - Illness [Unknown]
  - Nausea [Unknown]
  - Mydriasis [Unknown]
  - Urticaria [Unknown]
